FAERS Safety Report 12751555 (Version 2)
Quarter: 2016Q4

REPORT INFORMATION
  Report Type: Spontaneous
  Country: JP (occurrence: JP)
  Receive Date: 20160915
  Receipt Date: 20161011
  Transmission Date: 20170207
  Serious: Yes (Hospitalization, Other)
  Sender: FDA-Public Use
  Company Number: JP-GILEAD-2016-0232549

PATIENT
  Sex: Female

DRUGS (11)
  1. HARVONI [Suspect]
     Active Substance: LEDIPASVIR\SOFOSBUVIR
     Dosage: UNK UNK, QOD
     Route: 048
     Dates: start: 20160714
  2. GLORIAMIN                          /00518301/ [Concomitant]
  3. VOLTAREN [Concomitant]
     Active Substance: DICLOFENAC SODIUM
  4. KARY UNI                           /00528801/ [Concomitant]
     Active Substance: PIRENOXINE
  5. SUCRODE [Concomitant]
  6. SULPIRIDE [Concomitant]
     Active Substance: SULPIRIDE
  7. RESMIT [Concomitant]
  8. FUROSEMIDE. [Concomitant]
     Active Substance: FUROSEMIDE
  9. MECOBALAMINE [Concomitant]
  10. HARVONI [Suspect]
     Active Substance: LEDIPASVIR\SOFOSBUVIR
     Indication: HEPATITIS C
     Dosage: UNK
     Route: 048
     Dates: start: 20160519, end: 20160713
  11. ALLOPURINOL. [Concomitant]
     Active Substance: ALLOPURINOL

REACTIONS (4)
  - Renal impairment [Not Recovered/Not Resolved]
  - Osteomyelitis [Unknown]
  - Off label use [Not Recovered/Not Resolved]
  - Decubitus ulcer [Unknown]

NARRATIVE: CASE EVENT DATE: 20160714
